FAERS Safety Report 8417036-6 (Version None)
Quarter: 2012Q2

REPORT INFORMATION
  Report Type: 
  Country: None (occurrence: None)
  Receive Date: 20120606
  Receipt Date: 20120530
  Transmission Date: 20120825
  Serious: Yes (Other)
  Sender: FDA-Public Use
  Company Number: FR-PFIZER INC-2012129553

PATIENT
  Age: 45 Year
  Sex: Female

DRUGS (3)
  1. TRILEPTAL [Concomitant]
     Indication: EPILEPSY
     Route: 048
  2. SOMATROPIN RDNA [Suspect]
     Indication: HYPOPITUITARISM
     Dosage: 0.5 MG, 1X/DAY
     Dates: start: 20090401, end: 20120301
  3. HYDROCORTISONE [Concomitant]
     Dosage: 20 MG, 1X/DAY
     Route: 048

REACTIONS (3)
  - NEOPLASM PROGRESSION [None]
  - CONVULSION [None]
  - INSULIN-LIKE GROWTH FACTOR INCREASED [None]
